FAERS Safety Report 6089424-7 (Version None)
Quarter: 2009Q1

REPORT INFORMATION
  Report Type: 
  Country: None (occurrence: None)
  Receive Date: 20090224
  Receipt Date: 20090216
  Transmission Date: 20090719
  Serious: Yes (Other)
  Sender: FDA-Public Use
  Company Number: ES-ELI_LILLY_AND_COMPANY-ES200902004281

PATIENT
  Age: 65 Year
  Sex: Male

DRUGS (1)
  1. CIALIS [Suspect]
     Indication: ERECTILE DYSFUNCTION
     Dosage: 20 MG, UNKNOWN
     Route: 048
     Dates: start: 20080905, end: 20080907

REACTIONS (3)
  - BACK PAIN [None]
  - FATIGUE [None]
  - MALAISE [None]
